FAERS Safety Report 9603821 (Version 3)
Quarter: 2014Q1

REPORT INFORMATION
  Report Type: Spontaneous
  Country: CA (occurrence: CA)
  Receive Date: 20131008
  Receipt Date: 20140205
  Transmission Date: 20141002
  Serious: Yes (Hospitalization)
  Sender: FDA-Public Use
  Company Number: CA-AMGEN-CANSP2013069836

PATIENT
  Age: 15 Year
  Sex: Female
  Weight: 73.6 kg

DRUGS (10)
  1. ENBREL [Suspect]
     Indication: JUVENILE IDIOPATHIC ARTHRITIS
     Dosage: 50 MG, QWK
     Route: 058
     Dates: start: 201304
  2. METHOTREXATE [Concomitant]
     Indication: JUVENILE IDIOPATHIC ARTHRITIS
     Dosage: 25 MG, QWK
     Route: 058
     Dates: start: 201212
  3. FOLATE [Concomitant]
     Indication: JUVENILE IDIOPATHIC ARTHRITIS
     Dosage: 1 MG, QD
     Route: 048
     Dates: start: 201212
  4. TECTA [Concomitant]
     Dosage: 40 MG, QD
     Route: 048
     Dates: start: 201212
  5. VITAMIN D                          /00107901/ [Concomitant]
     Dosage: 1000 UNIT, QD
     Route: 048
     Dates: start: 201212
  6. PREDNISONE [Concomitant]
     Indication: JUVENILE IDIOPATHIC ARTHRITIS
     Dosage: 10 MG, QD
     Route: 048
     Dates: start: 201212, end: 201310
  7. PREDNISONE [Concomitant]
     Indication: PAIN
  8. FOLIC ACID [Concomitant]
     Dosage: UNK
  9. MULTIVITAMINS, PLAIN [Concomitant]
     Dosage: UNK
  10. NAPROXEN [Concomitant]
     Dosage: UNK, RPN

REACTIONS (4)
  - Palpitations [Recovered/Resolved]
  - Sinus tachycardia [Not Recovered/Not Resolved]
  - Dizziness [Not Recovered/Not Resolved]
  - Heart rate increased [Recovered/Resolved]
